FAERS Safety Report 8300097 (Version 5)
Quarter: 2013Q2

REPORT INFORMATION
  Report Type: Spontaneous
  Country: US (occurrence: US)
  Receive Date: 20111219
  Receipt Date: 20130424
  Transmission Date: 20140414
  Serious: No
  Sender: FDA-Public Use
  Company Number: US-ASTRAZENECA-2011SE24144

PATIENT
  Age: 68 Year
  Sex: Female

DRUGS (2)
  1. NEXIUM [Suspect]
     Route: 048
  2. CRESTOR [Suspect]
     Route: 048

REACTIONS (11)
  - Multiple allergies [Unknown]
  - Visual impairment [Unknown]
  - Chest discomfort [Unknown]
  - Dyspepsia [Unknown]
  - Pain [Unknown]
  - Nasopharyngitis [Unknown]
  - Back disorder [Unknown]
  - Hernia [Unknown]
  - Malaise [Unknown]
  - Abdominal discomfort [Unknown]
  - Drug dose omission [Unknown]
